FAERS Safety Report 9054365 (Version 1)
Quarter: 2013Q1

REPORT INFORMATION
  Report Type: Spontaneous
  Country: US (occurrence: US)
  Receive Date: 20130208
  Receipt Date: 20130208
  Transmission Date: 20140127
  Serious: No
  Sender: FDA-Public Use
  Company Number: US-GLAXOSMITHKLINE-A0752022A

PATIENT
  Age: 37 Year
  Sex: Female

DRUGS (2)
  1. PAXIL CR [Suspect]
     Indication: GENERALISED ANXIETY DISORDER
     Dosage: 37.5MG PER DAY
     Route: 048
     Dates: start: 200806
  2. PAXIL [Suspect]
     Indication: PRODUCT USED FOR UNKNOWN INDICATION
     Route: 065

REACTIONS (7)
  - Fatigue [Unknown]
  - Somnolence [Unknown]
  - Mental impairment [Unknown]
  - Rash [Unknown]
  - Rash [Unknown]
  - Fatigue [Unknown]
  - Drug ineffective [Unknown]
